FAERS Safety Report 9648154 (Version 2)
Quarter: 2013Q4

REPORT INFORMATION
  Report Type: Report from Study
  Country: TR (occurrence: TR)
  Receive Date: 20131028
  Receipt Date: 20131104
  Transmission Date: 20140711
  Serious: Yes (Hospitalization)
  Sender: FDA-Public Use
  Company Number: PHHY2013TR120862

PATIENT
  Age: 8 Year
  Sex: Male
  Weight: 29 kg

DRUGS (2)
  1. EXJADE [Suspect]
     Indication: THALASSAEMIA BETA
     Dosage: 1000 MG, DAILY
     Route: 048
     Dates: start: 2008
  2. EXJADE [Suspect]
     Dosage: 1000 MG, DAILY
     Route: 048
     Dates: start: 20131013

REACTIONS (3)
  - Appendicitis [Unknown]
  - Abdominal pain [Recovered/Resolved]
  - Pyrexia [Recovered/Resolved]
